FAERS Safety Report 7378294-2 (Version None)
Quarter: 2011Q1

REPORT INFORMATION
  Report Type: 
  Country: None (occurrence: None)
  Receive Date: 20110328
  Receipt Date: 20110321
  Transmission Date: 20110831
  Serious: Yes (Other)
  Sender: FDA-Public Use
  Company Number: IT-ROCHE-766719

PATIENT

DRUGS (2)
  1. RIBAVIRIN [Suspect]
     Route: 048
  2. PEGINTERFERON ALFA-2B [Suspect]
     Route: 065

REACTIONS (4)
  - ALANINE AMINOTRANSFERASE INCREASED [None]
  - FEBRILE CONVULSION [None]
  - LEUKOPENIA [None]
  - PROTEINURIA [None]
